FAERS Safety Report 8151010-2 (Version None)
Quarter: 2012Q1

REPORT INFORMATION
  Report Type: 
  Country: None (occurrence: None)
  Receive Date: 20120220
  Receipt Date: 20120209
  Transmission Date: 20120608
  Serious: Yes (Other)
  Sender: FDA-Public Use
  Company Number: KR-BRISTOL-MYERS SQUIBB COMPANY-16387946

PATIENT
  Age: 62 Year

DRUGS (2)
  1. ABILIFY [Suspect]
     Indication: TIC
     Dosage: 26MAY-01JUN:2.5MG 2JUN-22JUN:5MG/DAY 23JUN-13JUL:5MG BID
     Route: 048
     Dates: start: 20110526, end: 20110713
  2. PROPRANOLOL HYDROCHLORIDE [Concomitant]

REACTIONS (6)
  - ASTHENIA [None]
  - INSOMNIA [None]
  - FEELING ABNORMAL [None]
  - PALPITATIONS [None]
  - STUPOR [None]
  - ABULIA [None]
